FAERS Safety Report 6333343-5 (Version None)
Quarter: 2009Q3

REPORT INFORMATION
  Report Type: 
  Country: None (occurrence: None)
  Receive Date: 20090828
  Receipt Date: 20090511
  Transmission Date: 20100115
  Serious: No
  Sender: FDA-Public Use
  Company Number: A0784875A

PATIENT
  Age: 48 Year
  Sex: Female

DRUGS (2)
  1. BECONASE [Suspect]
     Indication: APPLICATION SITE REACTION
     Route: 045
  2. FENTANYL [Suspect]
     Indication: PAIN
     Route: 062
     Dates: start: 20090101, end: 20090101

REACTIONS (4)
  - APPLICATION SITE ERYTHEMA [None]
  - APPLICATION SITE PRURITUS [None]
  - APPLICATION SITE RASH [None]
  - DRUG INTERACTION [None]
